FAERS Safety Report 5373829-3 (Version None)
Quarter: 2007Q2

REPORT INFORMATION
  Report Type: 
  Country: None (occurrence: None)
  Receive Date: 20070628
  Receipt Date: 20070620
  Transmission Date: 20071010
  Serious: Yes (Hospitalization)
  Sender: FDA-Public Use
  Company Number: FR-GENENTECH-243336

PATIENT
  Age: 17 Year
  Sex: Male

DRUGS (1)
  1. MABTHERA [Suspect]
     Indication: BURKITT'S LYMPHOMA

REACTIONS (1)
  - LEUKOENCEPHALOPATHY [None]
